FAERS Safety Report 11692602 (Version 1)
Quarter: 2015Q4

REPORT INFORMATION
  Report Type: Spontaneous
  Country: US (occurrence: None)
  Receive Date: 20151102
  Receipt Date: 20151102
  Transmission Date: 20160304
  Serious: Yes (Hospitalization)
  Sender: FDA-Public Use
  Company Number: None

PATIENT
  Age: 53 Year
  Sex: Male
  Weight: 79.38 kg

DRUGS (4)
  1. FENTANYL. [Suspect]
     Active Substance: FENTANYL
     Indication: PAIN
     Dosage: 1 PATCH ?EVERY 72 HOURS?TOPICAL
     Route: 061
  2. FLUTICASONE [Concomitant]
     Active Substance: FLUTICASONE\FLUTICASONE PROPIONATE
  3. GABAPENTIN. [Concomitant]
     Active Substance: GABAPENTIN
  4. OXYCODONE/APAP [Concomitant]
     Active Substance: ACETAMINOPHEN\OXYCODONE HYDROCHLORIDE

REACTIONS (5)
  - Tachycardia [None]
  - Accidental overdose [None]
  - Cold sweat [None]
  - Pallor [None]
  - Device defective [None]

NARRATIVE: CASE EVENT DATE: 20151020
